FAERS Safety Report 13003375 (Version 1)
Quarter: 2016Q4

REPORT INFORMATION
  Report Type: Spontaneous
  Country: BR (occurrence: BR)
  Receive Date: 20161206
  Receipt Date: 20161206
  Transmission Date: 20170207
  Serious: Yes (Other)
  Sender: FDA-Public Use
  Company Number: PHHY2016BR049298

PATIENT
  Age: 70 Year
  Sex: Male
  Weight: 60 kg

DRUGS (4)
  1. DIOVAN HCT [Suspect]
     Active Substance: HYDROCHLOROTHIAZIDE\VALSARTAN
     Indication: PRODUCT USED FOR UNKNOWN INDICATION
     Dosage: UNK
     Route: 065
     Dates: start: 1995
  2. DIOVAN [Suspect]
     Active Substance: VALSARTAN
     Indication: PRODUCT USED FOR UNKNOWN INDICATION
     Route: 065
  3. ONBREZ INHALATION CAPSUL [Suspect]
     Active Substance: INDACATEROL
     Indication: EMPHYSEMA
     Dosage: QD
     Route: 055
     Dates: start: 20160407
  4. TRAYENTA [Concomitant]
     Active Substance: LINAGLIPTIN
     Indication: DIABETES MELLITUS
     Route: 065

REACTIONS (7)
  - Blood pressure increased [Unknown]
  - Blood creatinine increased [Recovering/Resolving]
  - Respiratory disorder [Unknown]
  - Blood creatinine decreased [Recovering/Resolving]
  - Blood pressure decreased [Recovering/Resolving]
  - Renal disorder [Recovering/Resolving]
  - Blood urea decreased [Recovering/Resolving]

NARRATIVE: CASE EVENT DATE: 20160408
